FAERS Safety Report 18446901 (Version 6)
Quarter: 2021Q1

REPORT INFORMATION
  Report Type: Spontaneous
  Country: US (occurrence: US)
  Receive Date: 20201030
  Receipt Date: 20210224
  Transmission Date: 20210419
  Serious: No
  Sender: FDA-Public Use
  Company Number: US-PFIZER INC-2020419202

PATIENT
  Age: 77 Year
  Sex: Male
  Weight: 105.23 kg

DRUGS (5)
  1. ALFUZOSIN [Concomitant]
     Active Substance: ALFUZOSIN
     Dosage: 10 MG
  2. VYNDAMAX [Suspect]
     Active Substance: TAFAMIDIS
     Indication: CARDIAC DISORDER
  3. VYNDAMAX [Suspect]
     Active Substance: TAFAMIDIS
     Indication: CARDIAC FAILURE
     Dosage: CURED WITH RADIATION AND CHEMOTHERAPY
     Route: 048
  4. ALLOPURINOL. [Concomitant]
     Active Substance: ALLOPURINOL
     Indication: GOUT
     Dosage: 200 MG, 1X/DAY
  5. VYNDAMAX [Suspect]
     Active Substance: TAFAMIDIS
     Indication: ARRHYTHMIA

REACTIONS (14)
  - Fatigue [Unknown]
  - Drug ineffective for unapproved indication [Unknown]
  - Hypoaesthesia [Unknown]
  - Hypoacusis [Unknown]
  - Pruritus [Unknown]
  - Peripheral coldness [Unknown]
  - Confusional state [Unknown]
  - Sensory disturbance [Unknown]
  - Balance disorder [Unknown]
  - Off label use [Unknown]
  - Condition aggravated [Unknown]
  - Coordination abnormal [Unknown]
  - Paraesthesia [Not Recovered/Not Resolved]
  - Sensory loss [Not Recovered/Not Resolved]
